FAERS Safety Report 12638213 (Version 3)
Quarter: 2017Q1

REPORT INFORMATION
  Report Type: Spontaneous
  Country: US (occurrence: US)
  Receive Date: 20160809
  Receipt Date: 20170130
  Transmission Date: 20170428
  Serious: Yes (Hospitalization)
  Sender: FDA-Public Use
  Company Number: US-SA-2016SA127323

PATIENT
  Age: 68 Year
  Sex: Male

DRUGS (2)
  1. PRALUENT [Suspect]
     Active Substance: ALIROCUMAB
     Indication: TYPE V HYPERLIPIDAEMIA
     Dosage: DOSE:75 MILLIGRAM(S)/MILLILITRE
     Route: 058
     Dates: start: 20160203, end: 20160203
  2. ALIROCUMAB PREFILLED PEN [Concomitant]
     Active Substance: ALIROCUMAB
     Indication: HYPERLIPIDAEMIA
     Route: 058
     Dates: start: 20160203

REACTIONS (5)
  - Arthralgia [Unknown]
  - Injection site bruising [Recovering/Resolving]
  - Local swelling [Unknown]
  - Rash [Unknown]
  - Surgery [Unknown]

NARRATIVE: CASE EVENT DATE: 20160702
